FAERS Safety Report 6259222-X (Version None)
Quarter: 2009Q3

REPORT INFORMATION
  Report Type: 
  Country: None (occurrence: None)
  Receive Date: 20090707
  Receipt Date: 20090630
  Transmission Date: 20100115
  Serious: Yes (Death)
  Sender: FDA-Public Use
  Company Number: DE-AVENTIS-200911441DE

PATIENT
  Age: 73 Year
  Sex: Male

DRUGS (4)
  1. ARAVA [Suspect]
     Indication: RHEUMATOID ARTHRITIS
     Route: 048
  2. RISEDRONATE SODIUM [Concomitant]
     Indication: OSTEOPOROSIS
     Dosage: DOSE: NOT REPORTED
     Dates: start: 20050401
  3. ROCEPHIN [Concomitant]
     Indication: PNEUMONIA
     Dosage: DOSE: NOT REPORTED
  4. RULID [Concomitant]
     Indication: PNEUMONIA
     Dosage: DOSE: NOT REPORTED

REACTIONS (2)
  - ACUTE HEPATIC FAILURE [None]
  - RENAL FAILURE [None]
